FAERS Safety Report 6667099-3 (Version None)
Quarter: 2010Q2

REPORT INFORMATION
  Report Type: 
  Country: None (occurrence: None)
  Receive Date: 20100405
  Receipt Date: 20100326
  Transmission Date: 20101027
  Serious: Yes (Hospitalization)
  Sender: FDA-Public Use
  Company Number: GR-BRISTOL-MYERS SQUIBB COMPANY-15032402

PATIENT
  Age: 48 Year
  Sex: Male
  Weight: 75 kg

DRUGS (3)
  1. CETUXIMAB [Suspect]
     Indication: NON-SMALL CELL LUNG CANCER
     Dosage: RECENT INF-8MAR10;STRENGTH: 5MG/ML.
     Route: 042
     Dates: start: 20091117, end: 20100318
  2. CISPLATIN [Suspect]
     Indication: NON-SMALL CELL LUNG CANCER
     Dosage: RECENT INF-2MAR10
     Route: 042
     Dates: start: 20091117, end: 20100302
  3. DOCETAXEL [Suspect]
     Indication: NON-SMALL CELL LUNG CANCER
     Dosage: RECENT INF-2MAR10
     Route: 042
     Dates: start: 20091117, end: 20100302

REACTIONS (1)
  - HAEMOPTYSIS [None]
